FAERS Safety Report 14714101 (Version 2)
Quarter: 2018Q2

REPORT INFORMATION
  Report Type: Spontaneous
  Country: US (occurrence: US)
  Receive Date: 20180404
  Receipt Date: 20180618
  Transmission Date: 20180711
  Serious: Yes (Hospitalization, Other)
  Sender: FDA-Public Use
  Company Number: US-JNJFOC-20180401242

PATIENT
  Age: 54 Year
  Sex: Male

DRUGS (3)
  1. INVOKANA [Suspect]
     Active Substance: CANAGLIFLOZIN
     Indication: TYPE 2 DIABETES MELLITUS
     Route: 048
     Dates: start: 20141209
  2. INVOKANA [Suspect]
     Active Substance: CANAGLIFLOZIN
     Indication: TYPE 2 DIABETES MELLITUS
     Route: 048
     Dates: start: 20151215, end: 20160520
  3. INVOKANA [Suspect]
     Active Substance: CANAGLIFLOZIN
     Indication: TYPE 2 DIABETES MELLITUS
     Route: 048
     Dates: start: 20160523

REACTIONS (7)
  - Osteonecrosis [Unknown]
  - Skin ulcer [Unknown]
  - Cellulitis [Unknown]
  - Dry gangrene [Unknown]
  - Osteomyelitis [Unknown]
  - Localised infection [Unknown]
  - Toe amputation [Unknown]

NARRATIVE: CASE EVENT DATE: 20151217
